FAERS Safety Report 4826005-4 (Version None)
Quarter: 2005Q4

REPORT INFORMATION
  Report Type: 
  Country: None (occurrence: None)
  Receive Date: 20051111
  Receipt Date: 20050725
  Transmission Date: 20060501
  Serious: Yes (Disabling)
  Sender: FDA-Public Use
  Company Number: US-MERCK-0507USA03998

PATIENT
  Age: 56 Year
  Sex: Male
  Weight: 80 kg

DRUGS (38)
  1. VIOXX [Suspect]
     Indication: NECK PAIN
     Route: 048
     Dates: start: 20001010, end: 20020401
  2. VIOXX [Suspect]
     Route: 048
     Dates: start: 20020402, end: 20020420
  3. VIOXX [Suspect]
     Route: 048
     Dates: start: 20020401, end: 20040913
  4. VIOXX [Suspect]
     Indication: POLYARTHRITIS
     Route: 048
     Dates: start: 20001010, end: 20020401
  5. VIOXX [Suspect]
     Route: 048
     Dates: start: 20020402, end: 20020420
  6. VIOXX [Suspect]
     Route: 048
     Dates: start: 20020401, end: 20040913
  7. DIOVAN [Concomitant]
     Indication: HYPERTENSION
     Route: 048
     Dates: start: 20020211, end: 20040827
  8. DIOVAN [Concomitant]
     Indication: CARDIAC DISORDER
     Route: 048
     Dates: start: 20020211, end: 20040827
  9. ATENOLOL [Concomitant]
     Indication: PROPHYLAXIS
     Route: 065
     Dates: start: 19910606
  10. NORVASC [Concomitant]
     Indication: HYPERTENSION
     Route: 065
     Dates: start: 19990617, end: 20020112
  11. ASPIRIN [Concomitant]
     Indication: PROPHYLAXIS
     Route: 065
     Dates: start: 19910301, end: 20010813
  12. ASPIRIN [Concomitant]
     Route: 065
     Dates: start: 20040814
  13. LIPITOR [Concomitant]
     Indication: BLOOD CHOLESTEROL INCREASED
     Route: 065
     Dates: start: 19980223
  14. MEVACOR [Concomitant]
     Indication: BLOOD CHOLESTEROL INCREASED
     Route: 048
     Dates: start: 20040324, end: 20040813
  15. ADVIL [Concomitant]
     Indication: PAIN
     Route: 065
     Dates: start: 20010501
  16. MOTRIN [Concomitant]
     Indication: PAIN
     Route: 065
     Dates: start: 20010501
  17. ALEVE [Concomitant]
     Indication: PAIN
     Route: 065
     Dates: start: 20010501
  18. TYLENOL (CAPLET) [Concomitant]
     Indication: PAIN
     Route: 065
     Dates: start: 20010501
  19. ZETIA [Concomitant]
     Route: 048
  20. ACIPHEX [Concomitant]
     Route: 065
  21. CIMETIDINE [Concomitant]
     Route: 065
  22. NIASPAN [Concomitant]
     Route: 065
  23. NEXIUM [Concomitant]
     Route: 065
  24. AMBIEN [Concomitant]
     Route: 065
  25. ZOMIG [Concomitant]
     Route: 065
  26. MEPERIDINE HYDROCHLORIDE [Concomitant]
     Route: 065
  27. PENICILLIN (UNSPECIFIED) [Concomitant]
     Route: 065
  28. HYDROCODONE BITARTRATE [Concomitant]
     Route: 065
  29. KEFLEX [Concomitant]
     Route: 065
  30. BENZONATATE [Concomitant]
     Route: 065
  31. [THERAPY UNSPECIFIED] [Concomitant]
     Route: 065
  32. LORATADINE [Concomitant]
     Route: 065
  33. HYDROXYZINE HYDROCHLORIDE [Concomitant]
     Route: 065
  34. AUGMENTIN '125' [Concomitant]
     Route: 065
  35. HISTINEX D [Concomitant]
     Route: 065
  36. CHLORZOXAZONE [Concomitant]
     Route: 065
  37. WELLBUTRIN [Concomitant]
     Route: 065
  38. AZITHROMYCIN [Concomitant]
     Route: 065

REACTIONS (21)
  - ABDOMINAL PAIN [None]
  - ANAEMIA [None]
  - ANGIOPATHY [None]
  - BLOOD PRESSURE DECREASED [None]
  - CARDIAC MURMUR [None]
  - CAROTID ARTERY OCCLUSION [None]
  - CARPAL TUNNEL SYNDROME [None]
  - CATARACT CORTICAL [None]
  - CEREBRAL INFARCTION [None]
  - CORONARY ARTERY DISEASE [None]
  - DISTURBANCE IN ATTENTION [None]
  - DYSPNOEA EXERTIONAL [None]
  - FATIGUE [None]
  - HEMIANOPIA [None]
  - HYPERTENSION [None]
  - HYPOTENSION [None]
  - MACULOPATHY [None]
  - PERIPHERAL VASCULAR DISORDER [None]
  - RECTAL POLYP [None]
  - SPINAL OSTEOARTHRITIS [None]
  - TREMOR [None]
